FAERS Safety Report 20236189 (Version 1)
Quarter: 2021Q4

REPORT INFORMATION
  Report Type: Spontaneous
  Country: VN (occurrence: VN)
  Receive Date: 20211228
  Receipt Date: 20211228
  Transmission Date: 20220303
  Serious: Yes (Hospitalization, Other)
  Sender: FDA-Public Use
  Company Number: VN-DENTSPLY-2021SCDP000368

PATIENT
  Age: 48 Year
  Sex: Female
  Weight: 66.7 kg

DRUGS (7)
  1. LIDOCAINE [Suspect]
     Active Substance: LIDOCAINE
     Indication: Local anaesthesia
     Dosage: 10 MILLILITER OF 2 % LIDOCAINE
  2. EPINEPHRINE [Concomitant]
     Active Substance: EPINEPHRINE
     Indication: Product used for unknown indication
     Dosage: UNK
  3. DIPHENHYDRAMINE [Concomitant]
     Active Substance: DIPHENHYDRAMINE
     Indication: Product used for unknown indication
  4. METHYLPREDNISOLONE [Concomitant]
     Active Substance: METHYLPREDNISOLONE
     Indication: Product used for unknown indication
     Dosage: UNK
  5. SODIUM CHLORIDE [Concomitant]
     Active Substance: SODIUM CHLORIDE
     Indication: Product used for unknown indication
     Dosage: 500 MILLILITER OF 0.9 % SALINE
     Route: 042
  6. EGG PHOSPHOLIPIDS\GLYCERIN\SOYBEAN OIL [Concomitant]
     Active Substance: EGG PHOSPHOLIPIDS\GLYCERIN\SOYBEAN OIL
     Indication: Product used for unknown indication
     Dosage: 1.5 ML/KG OVER 1???2 MIN 20 % LIPOFUNDIN
     Route: 040
  7. EGG PHOSPHOLIPIDS\GLYCERIN\SOYBEAN OIL [Concomitant]
     Active Substance: EGG PHOSPHOLIPIDS\GLYCERIN\SOYBEAN OIL
     Dosage: 0.25 ML/KG/MIN (17 ML/MIN) 20 % LIPOFUNDIN
     Route: 042

REACTIONS (10)
  - Hypoxia [Recovered/Resolved]
  - Nausea [Recovered/Resolved]
  - Hypoaesthesia oral [Recovered/Resolved]
  - Peripheral coldness [Recovered/Resolved]
  - Local anaesthetic systemic toxicity [Recovered/Resolved]
  - Vision blurred [Recovered/Resolved]
  - Dizziness [Recovered/Resolved]
  - Hypotension [Recovered/Resolved]
  - Bradycardia [Recovered/Resolved]
  - Mental status changes [Recovered/Resolved]
